FAERS Safety Report 5631601-0 (Version None)
Quarter: 2008Q1

REPORT INFORMATION
  Report Type: 
  Country: None (occurrence: None)
  Receive Date: 20080212
  Receipt Date: 20080130
  Transmission Date: 20080703
  Serious: Yes (Other)
  Sender: FDA-Public Use
  Company Number: M-08-0106

PATIENT
  Age: 75 Year
  Sex: Female

DRUGS (4)
  1. FORTICAL [Suspect]
     Dosage: UNK, UNK, INTRANASAL
     Route: 045
  2. CHANTIX [Suspect]
     Dosage: 1 MG BID PO
     Route: 048
  3. SILDENAFIL CITRATE [Suspect]
     Dosage: 20 MG TID PO
     Route: 048
  4. MIACALCIN [Suspect]
     Dosage: 200 IU, QD, INTRANASAL
     Route: 045

REACTIONS (3)
  - HYPERKINESIA [None]
  - MUSCLE ATROPHY [None]
  - RESTLESS LEGS SYNDROME [None]
